FAERS Safety Report 6833523-6 (Version None)
Quarter: 2010Q3

REPORT INFORMATION
  Report Type: 
  Country: None (occurrence: None)
  Receive Date: 20100712
  Receipt Date: 20070327
  Transmission Date: 20110219
  Serious: No
  Sender: FDA-Public Use
  Company Number: US-PFIZER INC-2007025148

PATIENT
  Age: 57 Year
  Sex: Female
  Weight: 78.02 kg

DRUGS (8)
  1. CHANTIX [Suspect]
     Indication: SMOKING CESSATION THERAPY
     Dates: start: 20070101
  2. HUMALOG [Concomitant]
  3. METOPROLOL [Concomitant]
  4. ACETYLSALICYLIC ACID [Concomitant]
  5. MAVIK [Concomitant]
  6. HYDROCHLOROTHIAZIDE [Concomitant]
  7. TARKA [Concomitant]
  8. VYTORIN [Concomitant]

REACTIONS (2)
  - DYSPEPSIA [None]
  - INSOMNIA [None]
